FAERS Safety Report 4494448-7 (Version None)
Quarter: 2004Q4

REPORT INFORMATION
  Report Type: 
  Country: None (occurrence: None)
  Receive Date: 20041102
  Receipt Date: 20041019
  Transmission Date: 20050328
  Serious: Yes (Other)
  Sender: FDA-Public Use
  Company Number: 2004IC000341

PATIENT
  Age: 73 Year
  Sex: Male

DRUGS (12)
  1. FLUOROURACIL [Suspect]
     Indication: COLON CANCER
     Dosage: 937 MG; INTRAVENOUS
     Route: 042
     Dates: start: 20040617, end: 20040706
  2. CALCIUM LEVOFOLINATE (CALCIUM LEVOFOLINATE) [Suspect]
     Indication: COLON CANCER
     Dosage: 400 MG; INTRAVENOUS
     Route: 042
     Dates: start: 20040617, end: 20040706
  3. KYTRIL [Suspect]
     Indication: COLON CANCER
     Dosage: 1 DF; INTRAVENOUS
     Route: 042
     Dates: start: 20040706
  4. FIRSTCIN (CEFOZOPRAN HYDROCHLORIDE) [Suspect]
     Indication: COLON CANCER
     Dosage: 4 GM; INTRAVENOUS
     Route: 042
     Dates: start: 20040702, end: 20040706
  5. UNIPHYL [Suspect]
     Indication: COLON CANCER
     Dosage: 200 MG; ORAL
     Route: 048
     Dates: end: 20040721
  6. OMEPRAZOLE [Suspect]
     Indication: COLON CANCER
     Dosage: 20 MG; ORAL
     Route: 048
     Dates: start: 20040616, end: 20040721
  7. ALLOPURINOL [Suspect]
     Indication: COLON CANCER
     Dosage: 100 MG; ORAL
     Route: 048
     Dates: end: 20040707
  8. LAC B (LACTOBACILLUS BIFIDUS, LYOPHILIZED) [Suspect]
     Indication: COLON CANCER
     Dosage: 3 GM; ORAL
     Route: 048
     Dates: start: 20040624, end: 20040721
  9. ZOLPIDEM TARTRATE [Suspect]
     Indication: COLON CANCER
     Dosage: 10 MG; ORAL
     Route: 048
     Dates: start: 20040624, end: 20040721
  10. DEPAS (ETIZOLAM) [Suspect]
     Indication: COLON CANCER
     Dosage: 0.5 MG; ORAL
     Route: 048
     Dates: start: 20040628, end: 20040721
  11. HERBAL EXTRACTS NOS (HERBAL EXTRACTS NOS) [Suspect]
     Indication: COLON CANCER
     Dosage: ORAL
     Route: 048
  12. LEPETAN (BUPRENORPHINE HYDROCHLORIDE) [Suspect]
     Indication: COLON CANCER
     Dosage: RECTAL
     Route: 054

REACTIONS (7)
  - ASTHENIA [None]
  - CEREBRAL HAEMORRHAGE [None]
  - HEPATIC NEOPLASM MALIGNANT [None]
  - METASTASES TO ABDOMINAL CAVITY [None]
  - METASTASES TO LUNG [None]
  - PAIN IN EXTREMITY [None]
  - RENAL MASS [None]
